FAERS Safety Report 18765441 (Version 1)
Quarter: 2021Q1

REPORT INFORMATION
  Report Type: Spontaneous
  Country: US (occurrence: US)
  Receive Date: 20210121
  Receipt Date: 20210121
  Transmission Date: 20210419
  Serious: No
  Sender: FDA-Public Use
  Company Number: US-SA-2021SA016948

PATIENT
  Age: 17 Year
  Sex: Female

DRUGS (1)
  1. DUPIXENT [Suspect]
     Active Substance: DUPILUMAB
     Dosage: UNK UNK, QOW
     Route: 050
     Dates: start: 20190310

REACTIONS (4)
  - Erythema [Unknown]
  - Injection site reaction [Unknown]
  - Product use issue [Unknown]
  - Pruritus [Unknown]

NARRATIVE: CASE EVENT DATE: 20190310
